FAERS Safety Report 4302673-0 (Version None)
Quarter: 2004Q1

REPORT INFORMATION
  Report Type: 
  Country: None (occurrence: None)
  Receive Date: 20040220
  Receipt Date: 20040206
  Transmission Date: 20041129
  Serious: Yes (Other)
  Sender: FDA-Public Use
  Company Number: 2004-UK-00131UK

PATIENT
  Age: 72 Year
  Sex: Male

DRUGS (4)
  1. SPIRIVA [Suspect]
     Indication: CHRONIC OBSTRUCTIVE AIRWAYS DISEASE
     Dosage: 18 MCG (18 MCG, NCE DAILY); IN
     Route: 055
     Dates: start: 20040107, end: 20040113
  2. SERETIDE (NR) [Concomitant]
  3. IPRATROPIUM BROMIDE (IPRATROPIUM BROMIDE) (NR) [Concomitant]
  4. FRUSEMIDE (FUROSEMIDE) (NR) [Concomitant]

REACTIONS (2)
  - CHEST DISCOMFORT [None]
  - COUGH [None]
